FAERS Safety Report 19801147 (Version 4)
Quarter: 2021Q4

REPORT INFORMATION
  Report Type: Report from Study
  Country: US (occurrence: US)
  Receive Date: 20210908
  Receipt Date: 20211221
  Transmission Date: 20220303
  Serious: Yes (Other)
  Sender: FDA-Public Use
  Company Number: US-SA-SAC20210504000304

PATIENT
  Age: 67 Year
  Sex: Female

DRUGS (3)
  1. DUPILUMAB [Suspect]
     Active Substance: DUPILUMAB
     Indication: Dermatitis atopic
     Dosage: 300 MG, QOW
     Route: 058
     Dates: start: 20200918, end: 20210826
  2. DUPILUMAB [Suspect]
     Active Substance: DUPILUMAB
     Indication: Psoriasis
  3. CLOBETASOL [Suspect]
     Active Substance: CLOBETASOL

REACTIONS (9)
  - Invasive ductal breast carcinoma [Unknown]
  - Skin exfoliation [Unknown]
  - Peripheral swelling [Recovered/Resolved]
  - Pain in extremity [Unknown]
  - Paraesthesia [Unknown]
  - Inflammation [Unknown]
  - Erythema [Recovered/Resolved]
  - Dermatitis atopic [Recovering/Resolving]
  - Product use in unapproved indication [Unknown]

NARRATIVE: CASE EVENT DATE: 20200918
